FAERS Safety Report 5854565-3 (Version None)
Quarter: 2008Q3

REPORT INFORMATION
  Report Type: 
  Country: None (occurrence: None)
  Receive Date: 20080822
  Receipt Date: 20071119
  Transmission Date: 20090109
  Serious: No
  Sender: FDA-Public Use
  Company Number: US-ABBOTT-07P-163-0421065-00

PATIENT
  Sex: Female
  Weight: 63.56 kg

DRUGS (3)
  1. SYNTHROID [Suspect]
     Indication: HORMONE REPLACEMENT THERAPY
     Dosage: WEEKLY DOSE: 550 MCG, DAILY DOSE VARIED USING 25 MCG TABLETS
     Route: 048
     Dates: start: 20071003, end: 20071011
  2. SYNTHROID [Suspect]
     Dosage: WEEKLY DOSE 600 MCG, DAILY DOSE VARIED USING 50 MCG TABLETS
     Route: 048
     Dates: start: 19910101, end: 20071003
  3. SYNTHROID [Suspect]
     Dosage: WEEKLY DOSE 550 MCG, DAILY DOSE VARIED USING 50 MCG TABLETS
     Route: 048
     Dates: start: 20071011

REACTIONS (3)
  - AGITATION [None]
  - ARRHYTHMIA [None]
  - PALPITATIONS [None]
